FAERS Safety Report 12853076 (Version 21)
Quarter: 2025Q2

REPORT INFORMATION
  Report Type: Report from Study
  Country: US (occurrence: US)
  Receive Date: 20161017
  Receipt Date: 20250512
  Transmission Date: 20250717
  Serious: Yes (Hospitalization, Other)
  Sender: JAZZ
  Company Number: US-JAZZ-2016-US-014084

PATIENT
  Age: 60 Year
  Sex: Female

DRUGS (87)
  1. XYREM [Suspect]
     Active Substance: SODIUM OXYBATE
     Indication: Narcolepsy
     Dosage: 2.25 GRAM, BID
     Dates: start: 200405, end: 2004
  2. XYREM [Suspect]
     Active Substance: SODIUM OXYBATE
     Dosage: 3 GRAM, BID
     Route: 048
     Dates: start: 200903, end: 200904
  3. XYREM [Suspect]
     Active Substance: SODIUM OXYBATE
     Route: 048
     Dates: start: 200904, end: 201511
  4. XYREM [Suspect]
     Active Substance: SODIUM OXYBATE
     Route: 048
     Dates: start: 201512
  5. XYREM [Suspect]
     Active Substance: SODIUM OXYBATE
     Route: 048
     Dates: start: 201512
  6. XYREM [Suspect]
     Active Substance: SODIUM OXYBATE
     Route: 048
  7. XYREM [Suspect]
     Active Substance: SODIUM OXYBATE
     Route: 048
  8. XYREM [Suspect]
     Active Substance: SODIUM OXYBATE
     Route: 048
  9. XYREM [Suspect]
     Active Substance: SODIUM OXYBATE
  10. BUPRENORPHINE\NALOXONE [Suspect]
     Active Substance: BUPRENORPHINE\NALOXONE
     Indication: Pain
  11. LYRICA [Suspect]
     Active Substance: PREGABALIN
     Indication: Fibromyalgia
     Dates: start: 20160724, end: 20160726
  12. LYRICA [Suspect]
     Active Substance: PREGABALIN
     Dosage: QID
  13. ALPHA LIPOIC ACID [Concomitant]
     Active Substance: .ALPHA.-LIPOIC ACID
     Indication: Product used for unknown indication
     Dosage: UNK UNK, QD
     Dates: start: 20151020
  14. COENZYME Q10 [Concomitant]
     Active Substance: DIETARY SUPPLEMENT\UBIDECARENONE
     Indication: Product used for unknown indication
     Dosage: UNK, QD
     Dates: start: 20151020
  15. COPPER [Concomitant]
     Active Substance: COPPER
     Indication: Product used for unknown indication
  16. CRESTOR [Concomitant]
     Active Substance: ROSUVASTATIN CALCIUM
     Indication: Product used for unknown indication
  17. FISH OIL [Concomitant]
     Active Substance: FISH OIL
     Indication: Product used for unknown indication
     Dosage: PEARLS SOFTGEL, QD
     Dates: start: 20151020
  18. MAGNESIUM OXIDE [Concomitant]
     Active Substance: MAGNESIUM OXIDE
     Indication: Product used for unknown indication
     Dates: start: 20151020
  19. MANGANESE GLUCONATE [Concomitant]
     Active Substance: MANGANESE GLUCONATE
     Indication: Product used for unknown indication
     Dosage: UNK, QD
     Dates: start: 20151020
  20. MELATONIN [Concomitant]
     Active Substance: MELATONIN
     Indication: Product used for unknown indication
     Dosage: UNK, QD
     Dates: start: 20151020
  21. NIACIN [Concomitant]
     Active Substance: NIACIN
     Indication: Product used for unknown indication
  22. SELENIUM [Concomitant]
     Active Substance: SELENIUM
     Indication: Product used for unknown indication
     Dosage: UNK, QD
     Dates: start: 20151020
  23. VALTREX [Concomitant]
     Active Substance: VALACYCLOVIR HYDROCHLORIDE
     Indication: Product used for unknown indication
     Dates: start: 20151020
  24. VITAMIN D3 [Concomitant]
     Active Substance: CHOLECALCIFEROL
     Indication: Product used for unknown indication
  25. VSL 3 [PROBIOTICS NOS] [Concomitant]
     Indication: Product used for unknown indication
  26. ZINC [Concomitant]
     Active Substance: ZINC
     Indication: Product used for unknown indication
     Dates: start: 20151020
  27. ZINC [Concomitant]
     Active Substance: ZINC
     Dates: start: 20200101
  28. LEXAPRO [Concomitant]
     Active Substance: ESCITALOPRAM OXALATE
     Indication: Product used for unknown indication
  29. LIOTHYRONINE SODIUM [Concomitant]
     Active Substance: LIOTHYRONINE SODIUM
     Indication: Product used for unknown indication
  30. AMLODIPINE BESYLATE [Concomitant]
     Active Substance: AMLODIPINE BESYLATE
     Indication: Product used for unknown indication
     Dosage: UNK, QD
     Dates: start: 20130819
  31. OMEPRAZOLE [Concomitant]
     Active Substance: OMEPRAZOLE
     Indication: Gastrooesophageal reflux disease
  32. BACLOFEN [Concomitant]
     Active Substance: BACLOFEN
     Indication: Product used for unknown indication
     Dates: start: 20140314
  33. BACLOFEN [Concomitant]
     Active Substance: BACLOFEN
  34. BACLOFEN [Concomitant]
     Active Substance: BACLOFEN
  35. BACLOFEN [Concomitant]
     Active Substance: BACLOFEN
  36. EVOXAC [Concomitant]
     Active Substance: CEVIMELINE HYDROCHLORIDE
     Indication: Product used for unknown indication
     Dates: start: 20130226
  37. WELLBUTRIN [Concomitant]
     Active Substance: BUPROPION HYDROCHLORIDE
     Indication: Product used for unknown indication
  38. ALPRAZOLAM [Concomitant]
     Active Substance: ALPRAZOLAM
     Indication: Product used for unknown indication
  39. XANAX [Concomitant]
     Active Substance: ALPRAZOLAM
     Indication: Product used for unknown indication
  40. VITAMIN B5 [CALCIUM PANTOTHENATE] [Concomitant]
     Indication: Product used for unknown indication
     Dosage: UNK UNK, QD
     Dates: start: 20151020
  41. FOLIC ACID [Concomitant]
     Active Substance: FOLIC ACID
     Indication: Fibromyalgia
     Dates: start: 20160724
  42. FOLIC ACID [Concomitant]
     Active Substance: FOLIC ACID
     Dates: start: 20111101
  43. GLUCOSAMINE + CHONDORITIN [Concomitant]
     Indication: Product used for unknown indication
     Dosage: QD
     Dates: start: 20151020
  44. LEVACECARNINE HYDROCHLORIDE [Concomitant]
     Active Substance: LEVACECARNINE HYDROCHLORIDE
     Indication: Product used for unknown indication
     Dates: start: 20151101
  45. LEVACECARNINE HYDROCHLORIDE [Concomitant]
     Active Substance: LEVACECARNINE HYDROCHLORIDE
     Dates: start: 20200101
  46. VITAMIN B1 [Concomitant]
     Active Substance: THIAMINE HYDROCHLORIDE
     Indication: Product used for unknown indication
     Dates: start: 20151020
  47. VITAMIN C [Concomitant]
     Active Substance: ASCORBIC ACID
     Indication: Product used for unknown indication
     Dates: start: 20151020
  48. BETA CAROTENE [Concomitant]
     Active Substance: BETA CAROTENE
     Indication: Product used for unknown indication
     Dates: start: 20111101
  49. ZINC CHELATED [Concomitant]
     Indication: Product used for unknown indication
     Dates: start: 20151020
  50. VITAMIN E [Concomitant]
     Active Substance: .ALPHA.-TOCOPHEROL
     Indication: Product used for unknown indication
     Dates: start: 20151020
  51. AJOVY [Concomitant]
     Active Substance: FREMANEZUMAB-VFRM
     Indication: Product used for unknown indication
     Dates: start: 20210801
  52. DLPA [Concomitant]
     Indication: Product used for unknown indication
     Dosage: UNK, QD
     Dates: start: 20151020
  53. NAC [DICLOFENAC SODIUM] [Concomitant]
     Indication: Product used for unknown indication
     Dates: start: 20151020
  54. CLA 1000 [Concomitant]
     Indication: Product used for unknown indication
     Dates: start: 20151101
  55. VITAMIN B12 [Concomitant]
     Active Substance: CYANOCOBALAMIN
     Indication: Product used for unknown indication
     Dates: start: 20210801
  56. ROSUVASTATIN CALCIUM [Concomitant]
     Active Substance: ROSUVASTATIN CALCIUM
     Indication: Product used for unknown indication
     Dates: start: 20211002
  57. DL-PHENYLALANINE [Concomitant]
     Active Substance: PHENYLALANINE, DL-
     Indication: Product used for unknown indication
     Dosage: UNK, QD
     Dates: start: 20151020
  58. RETINOL [Concomitant]
     Active Substance: RETINOL
     Indication: Product used for unknown indication
     Dates: start: 20151101
  59. ACETAMINOPHEN\HYDROCODONE [Concomitant]
     Active Substance: ACETAMINOPHEN\HYDROCODONE
     Indication: Product used for unknown indication
     Dates: start: 20220516
  60. MAGNESIUM GLUCEPTATE [Concomitant]
     Active Substance: MAGNESIUM GLUCEPTATE
     Indication: Product used for unknown indication
     Dates: start: 20151020
  61. MAGNESIUM CITRATE [Concomitant]
     Active Substance: MAGNESIUM CITRATE
     Indication: Product used for unknown indication
     Dates: start: 20231001
  62. LUTEOLIN [Concomitant]
     Active Substance: LUTEOLIN
     Indication: Product used for unknown indication
     Dates: start: 20210101
  63. VITAMIN B2 [Concomitant]
     Active Substance: RIBOFLAVIN
     Indication: Product used for unknown indication
     Dates: start: 20130101
  64. NIACINAMIDE [Concomitant]
     Active Substance: NIACINAMIDE
     Indication: Product used for unknown indication
     Dates: start: 20231209
  65. PRASTERONE [Concomitant]
     Active Substance: PRASTERONE
     Indication: Product used for unknown indication
     Dates: start: 20231001
  66. CEVIMELINE HYDROCHLORIDE [Concomitant]
     Active Substance: CEVIMELINE HYDROCHLORIDE
     Indication: Product used for unknown indication
     Dates: start: 20090101
  67. DOCUSATE SODIUM [Concomitant]
     Active Substance: DOCUSATE SODIUM
     Indication: Product used for unknown indication
     Dates: start: 20230601
  68. ULTRA K [Concomitant]
     Indication: Product used for unknown indication
     Dates: start: 20231201
  69. H. PYLORI KIT [Concomitant]
     Indication: Product used for unknown indication
     Dates: start: 20231201
  70. METABOLIC ONE [Concomitant]
     Indication: Product used for unknown indication
     Dates: start: 20231201
  71. DGL [Concomitant]
     Indication: Product used for unknown indication
     Dates: start: 20231201
  72. BERBERINE [Concomitant]
     Active Substance: BERBERINE
     Indication: Product used for unknown indication
     Dates: start: 20231201
  73. TRAMADOL [Concomitant]
     Active Substance: TRAMADOL
     Indication: Product used for unknown indication
  74. TIZANIDINE [Concomitant]
     Active Substance: TIZANIDINE
     Indication: Product used for unknown indication
  75. ALEVE [Concomitant]
     Active Substance: NAPROXEN SODIUM
     Indication: Product used for unknown indication
  76. ALEVE [Concomitant]
     Active Substance: NAPROXEN SODIUM
     Dosage: 650 MILLIGRAM, TID
  77. TYLENOL [Concomitant]
     Active Substance: ACETAMINOPHEN
     Indication: Product used for unknown indication
     Dates: start: 20240614
  78. LUTEIN [XANTOFYL;ZEAXANTHIN] [Concomitant]
     Indication: Product used for unknown indication
  79. BIOTIN [Concomitant]
     Active Substance: BIOTIN
     Indication: Product used for unknown indication
     Dates: start: 20151020
  80. DONEPEZIL HYDROCHLORIDE [Concomitant]
     Active Substance: DONEPEZIL HYDROCHLORIDE
     Indication: Product used for unknown indication
     Dates: start: 20240607
  81. PEPTO-BISMOL [Concomitant]
     Active Substance: BISMUTH SUBSALICYLATE
     Indication: Diarrhoea
  82. NEUROMAG PRO [Concomitant]
     Dates: start: 20250407
  83. PREGNENOLONE [Concomitant]
     Active Substance: PREGNENOLONE
     Dates: start: 20250507
  84. SENOLYTIC ACTIVATOR [Concomitant]
     Dates: start: 20250507
  85. GLUTATHIONE [Concomitant]
     Active Substance: GLUTATHIONE
     Dates: start: 20250507
  86. GLYCINE [Concomitant]
     Active Substance: GLYCINE
     Dates: start: 20250507
  87. IRON [Concomitant]
     Active Substance: IRON
     Indication: Anaemia

REACTIONS (40)
  - Red blood cell count decreased [Unknown]
  - Bursa disorder [Not Recovered/Not Resolved]
  - Spondylolisthesis [Not Recovered/Not Resolved]
  - Scoliosis [Unknown]
  - Suicidal ideation [Recovered/Resolved]
  - Depression [Not Recovered/Not Resolved]
  - Gastric ulcer [Unknown]
  - Tendonitis [Not Recovered/Not Resolved]
  - Inflammation [Not Recovered/Not Resolved]
  - Fall [Recovered/Resolved]
  - Mycotoxicosis [Unknown]
  - Fibromyalgia [Unknown]
  - Migraine [Not Recovered/Not Resolved]
  - Illness [Unknown]
  - Dysuria [Unknown]
  - Stress [Not Recovered/Not Resolved]
  - Neck pain [Unknown]
  - Spinal osteoarthritis [Unknown]
  - Somnolence [Unknown]
  - Electrocardiogram abnormal [Unknown]
  - Back pain [Unknown]
  - Nausea [Not Recovered/Not Resolved]
  - Vomiting [Unknown]
  - Headache [Recovering/Resolving]
  - Drug interaction [Unknown]
  - Constipation [Unknown]
  - Diarrhoea [Unknown]
  - Fall [Unknown]
  - Anxiety [Unknown]
  - Gastrooesophageal reflux disease [Unknown]
  - Sciatica [Unknown]
  - Rotator cuff syndrome [Unknown]
  - Arthralgia [Unknown]
  - Haemorrhoids [Unknown]
  - Amnesia [Unknown]
  - Confusional state [Unknown]
  - White blood cell count decreased [Unknown]
  - Product administration interrupted [Unknown]
  - Incorrect dose administered [Unknown]
  - Product dose omission issue [Unknown]

NARRATIVE: CASE EVENT DATE: 20190319
